FAERS Safety Report 6090872-X (Version None)
Quarter: 2009Q1

REPORT INFORMATION
  Report Type: 
  Country: None (occurrence: None)
  Receive Date: 20090223
  Receipt Date: 20090212
  Transmission Date: 20090719
  Serious: Yes (Death)
  Sender: FDA-Public Use
  Company Number: KV200900096

PATIENT
  Age: 92 Year
  Sex: Male

DRUGS (12)
  1. ISOSORBIDE MONONITRATE [Suspect]
     Indication: CHEST PAIN
     Dosage: 15 MG, ONE-HALE TABLET QD, ORAL
     Route: 048
  2. FENTANYL-100 [Concomitant]
  3. VICODIN [Concomitant]
  4. LISINOPRIL [Concomitant]
  5. ALDACTONE [Concomitant]
  6. FLOMAX /00889901/ (MORNIFLUMATE) [Concomitant]
  7. AMARYL [Concomitant]
  8. FUROSEMIDE [Concomitant]
  9. POTASSIUM CHLORIDE [Concomitant]
  10. LEXAPRO [Concomitant]
  11. SYNTHROID [Concomitant]
  12. CARVEDILOL [Concomitant]

REACTIONS (1)
  - PRODUCT QUALITY ISSUE [None]
